FAERS Safety Report 8932706 (Version 2)
Quarter: 2015Q2

REPORT INFORMATION
  Report Type: Spontaneous
  Country: US (occurrence: US)
  Receive Date: 20121129
  Receipt Date: 20150527
  Transmission Date: 20150821
  Serious: Yes (Congenital Anomaly)
  Sender: FDA-Public Use
  Company Number: US-ELI_LILLY_AND_COMPANY-US201211005868

PATIENT

DRUGS (5)
  1. PHENERGAN [Concomitant]
     Active Substance: PROMETHAZINE HYDROCHLORIDE
     Route: 064
  2. AZITHROMYCIN [Concomitant]
     Active Substance: AZITHROMYCIN ANHYDROUS
     Route: 064
  3. PROZAC [Suspect]
     Active Substance: FLUOXETINE HYDROCHLORIDE
     Indication: DEPRESSION
     Dosage: 20 MG, QD
     Route: 064
     Dates: start: 2005
  4. ALEVE [Concomitant]
     Active Substance: NAPROXEN SODIUM
     Route: 064
  5. PRENAT                             /00023601/ [Concomitant]
     Route: 064

REACTIONS (3)
  - Renal hypertrophy [Unknown]
  - Single functional kidney [Unknown]
  - Foetal exposure during pregnancy [Recovered/Resolved]
